FAERS Safety Report 17171414 (Version 5)
Quarter: 2020Q3

REPORT INFORMATION
  Report Type: Spontaneous
  Country: DE (occurrence: DE)
  Receive Date: 20191218
  Receipt Date: 20200715
  Transmission Date: 20201102
  Serious: Yes (Hospitalization)
  Sender: FDA-Public Use
  Company Number: DE-ANIPHARMA-2019-DE-000182

PATIENT
  Sex: Female

DRUGS (6)
  1. MIRTAZAPINE. [Suspect]
     Active Substance: MIRTAZAPINE
     Dosage: 15 MG DAILY
     Route: 065
  2. CANDESARTAN. [Suspect]
     Active Substance: CANDESARTAN
     Indication: HYPERTENSION
     Dosage: 32 MG DAILY
     Route: 048
  3. TAXANES NOS [Concomitant]
     Dosage: UNK
     Route: 065
     Dates: start: 20090129, end: 200906
  4. CARBAMAZEPINE. [Suspect]
     Active Substance: CARBAMAZEPINE
     Dosage: 600 MG DAILY
     Route: 065
  5. LETROZOLE. [Suspect]
     Active Substance: LETROZOLE
     Dosage: 2.5 MG QAM
     Route: 048
     Dates: start: 20181009
  6. KISQALI [Suspect]
     Active Substance: RIBOCICLIB
     Dosage: 600 MG UNK / 600 MG UNK / 600 MG UNK / 600 MG UNK / 400 MG UNK
     Route: 048
     Dates: start: 20181009

REACTIONS (4)
  - Vomiting [Recovered/Resolved]
  - Dizziness [Recovering/Resolving]
  - Nausea [Recovered/Resolved]
  - Hyponatraemia [Recovered/Resolved]

NARRATIVE: CASE EVENT DATE: 20181021
